FAERS Safety Report 10011853 (Version 1)
Quarter: 2014Q1

REPORT INFORMATION
  Report Type: Spontaneous
  Country: CH (occurrence: CH)
  Receive Date: 20140314
  Receipt Date: 20140314
  Transmission Date: 20141002
  Serious: Yes (Other)
  Sender: FDA-Public Use
  Company Number: CH-009507513-1403CHE005478

PATIENT
  Age: 84 Year
  Sex: Female

DRUGS (14)
  1. REMERON [Suspect]
     Indication: SCHIZOAFFECTIVE DISORDER BIPOLAR TYPE
     Dosage: UNK ,QD, 30MG DAILY
     Route: 048
  2. REMERON [Interacting]
     Dosage: UNK, QPM, 45 MG DAILY
     Dates: start: 20140130
  3. VENLAFAXINE HYDROCHLORIDE [Interacting]
     Indication: SCHIZOAFFECTIVE DISORDER BIPOLAR TYPE
     Dosage: UNK, QD, 225MG DAILY
     Route: 048
  4. VENLAFAXINE HYDROCHLORIDE [Interacting]
     Dosage: UNK, QD, 150 MG DAILY
     Route: 048
     Dates: start: 20140207
  5. VENLAFAXINE HYDROCHLORIDE [Interacting]
     Dosage: UNK, QAM, 75 MG DAILY
     Route: 048
     Dates: start: 20140212, end: 20140213
  6. SOLIAN [Interacting]
     Indication: SCHIZOAFFECTIVE DISORDER BIPOLAR TYPE
     Dosage: 400 MG, BID
     Route: 048
     Dates: start: 20140128
  7. NORTRILEN [Interacting]
     Indication: SCHIZOAFFECTIVE DISORDER BIPOLAR TYPE
     Dosage: UNK, BID
     Route: 048
     Dates: start: 20140206
  8. NORTRILEN [Interacting]
     Dosage: , DAILY DOSE OF 100 MG
     Route: 048
     Dates: start: 20140219
  9. DIGOXIN [Interacting]
     Dosage: UNK UNK, QD, 0.125 MG DAILY
     Route: 048
  10. ZANIDIP [Concomitant]
     Dosage: UNK UNK, QD, DAILY DOSE 10 MG
     Route: 048
  11. DISTRANEURIN [Concomitant]
     Dosage: 300 MG, TID
     Route: 048
  12. DOXIUM [Concomitant]
     Dosage: 500 MG, BID
     Route: 048
  13. MAGNESIUM DIASPORAL [Concomitant]
     Dosage: UNK, QD, DAILY DOSE 300 MG
     Route: 048
  14. SEROQUEL XR [Concomitant]
     Dosage: UNK, DAILY DOSE 800 MG
     Route: 048
     Dates: end: 20140202

REACTIONS (4)
  - Bundle branch block left [Not Recovered/Not Resolved]
  - Atrioventricular block first degree [Not Recovered/Not Resolved]
  - Electrocardiogram QT prolonged [Not Recovered/Not Resolved]
  - Drug interaction [Unknown]
